FAERS Safety Report 21143383 (Version 1)
Quarter: 2022Q3

REPORT INFORMATION
  Report Type: Spontaneous
  Country: TR (occurrence: TR)
  Receive Date: 20220728
  Receipt Date: 20220728
  Transmission Date: 20221027
  Serious: Yes (Hospitalization, Other)
  Sender: FDA-Public Use
  Company Number: TR-PFIZER INC-PV202200029638

PATIENT
  Age: 26 Year
  Sex: Female
  Weight: 63 kg

DRUGS (6)
  1. DEXMEDETOMIDINE HYDROCHLORIDE [Suspect]
     Active Substance: DEXMEDETOMIDINE HYDROCHLORIDE
     Indication: Anaesthesia
     Dosage: 1 MCG KG-1 LOADING DOSE FOR 10 MIN
     Route: 042
  2. DEXMEDETOMIDINE HYDROCHLORIDE [Suspect]
     Active Substance: DEXMEDETOMIDINE HYDROCHLORIDE
     Dosage: 0.5 MCG, KG-1 , HR-1 AS MAINTENANCE
     Route: 042
  3. PROPOFOL [Suspect]
     Active Substance: PROPOFOL
     Indication: Anaesthesia
     Dosage: 2- 2.5 MG, KG-1
     Route: 042
  4. PROPOFOL [Suspect]
     Active Substance: PROPOFOL
     Dosage: 0.1 MG, KG-1 MIN - 1
     Route: 042
  5. ROCURONIUM BROMIDE [Suspect]
     Active Substance: ROCURONIUM BROMIDE
     Indication: Anaesthesia
     Dosage: 0.6 MG, KG-1
     Route: 042
  6. FENTANYL [Suspect]
     Active Substance: FENTANYL
     Indication: Anaesthesia
     Dosage: 2 MCG, KG-1
     Route: 042

REACTIONS (2)
  - Rhinorrhoea [Unknown]
  - Drug ineffective [Unknown]
